FAERS Safety Report 5862281-7 (Version None)
Quarter: 2008Q3

REPORT INFORMATION
  Report Type: 
  Country: None (occurrence: None)
  Receive Date: 20080826
  Receipt Date: 20080808
  Transmission Date: 20090109
  Serious: Yes (Hospitalization)
  Sender: FDA-Public Use
  Company Number: 2008BI017685

PATIENT
  Age: 48 Year
  Sex: Male
  Weight: 69 kg

DRUGS (2)
  1. TYSABRI [Suspect]
     Indication: MULTIPLE SCLEROSIS
     Dosage: 300 MG; QM; IV
     Route: 042
     Dates: start: 20080425
  2. DESLORATADINE [Concomitant]

REACTIONS (3)
  - DEEP VEIN THROMBOSIS [None]
  - RASH PRURITIC [None]
  - URINARY TRACT INFECTION [None]
